FAERS Safety Report 8138902-5 (Version None)
Quarter: 2012Q1

REPORT INFORMATION
  Report Type: 
  Country: None (occurrence: None)
  Receive Date: 20120215
  Receipt Date: 20120207
  Transmission Date: 20120608
  Serious: Yes (Other)
  Sender: FDA-Public Use
  Company Number: US-ROCHE-1037937

PATIENT
  Sex: Female

DRUGS (8)
  1. BONIVA [Suspect]
     Indication: OSTEOPOROSIS
     Dates: start: 20080501
  2. BONIVA [Suspect]
     Dates: start: 20090501
  3. FOSAMAX PLUS D [Suspect]
     Dates: start: 20100801
  4. ACTONEL [Suspect]
     Indication: OSTEOPOROSIS
     Dates: start: 20100501
  5. FOSAMAX PLUS D [Suspect]
     Indication: OSTEOPOROSIS
     Dates: start: 20080601, end: 20081001
  6. ACTONEL [Suspect]
     Dates: start: 20100701
  7. BONIVA [Suspect]
     Dates: start: 20101001, end: 20110201
  8. FOSAMAX [Suspect]
     Indication: OSTEOPOROSIS

REACTIONS (3)
  - ANXIETY [None]
  - LOW TURNOVER OSTEOPATHY [None]
  - FEMUR FRACTURE [None]
